FAERS Safety Report 5072955-6 (Version None)
Quarter: 2006Q3

REPORT INFORMATION
  Report Type: 
  Country: None (occurrence: None)
  Receive Date: 20060802
  Receipt Date: 20060712
  Transmission Date: 20061208
  Serious: Yes (Other)
  Sender: FDA-Public Use
  Company Number: 2006083479

PATIENT
  Age: 58 Year
  Sex: Male
  Weight: 83.2 kg

DRUGS (6)
  1. VFEND [Suspect]
     Indication: ASPERGILLOSIS
     Dosage: 600 MG (300 MG, 2 IN 1 D), UNKNOWN
     Dates: start: 20060401
  2. DEXAMETHASONE TAB [Concomitant]
  3. RITUXIMAB [Concomitant]
  4. OMEPRAZOLE [Concomitant]
  5. AMITRIPTYLINE HCL [Concomitant]
  6. ZOPICLONE [Concomitant]

REACTIONS (6)
  - AGITATION [None]
  - AMNESIA [None]
  - BEDRIDDEN [None]
  - CHILLS [None]
  - CONFUSIONAL STATE [None]
  - FEELING ABNORMAL [None]
